FAERS Safety Report 23080252 (Version 1)
Quarter: 2023Q4

REPORT INFORMATION
  Report Type: Spontaneous
  Country: US (occurrence: None)
  Receive Date: 20231018
  Receipt Date: 20231018
  Transmission Date: 20240110
  Serious: Yes (Hospitalization)
  Sender: FDA-Public Use
  Company Number: None

PATIENT
  Age: 77 Year
  Sex: Male
  Weight: 117 kg

DRUGS (1)
  1. CARBAMAZEPINE [Suspect]
     Active Substance: CARBAMAZEPINE
     Dosage: FREQUENCY : TWICE A DAY;?
     Route: 048
     Dates: start: 20220926, end: 20221209

REACTIONS (2)
  - Mental status changes [None]
  - Confusional state [None]

NARRATIVE: CASE EVENT DATE: 20221128
